FAERS Safety Report 15823354 (Version 1)
Quarter: 2019Q1

REPORT INFORMATION
  Report Type: Spontaneous
  Country: JP (occurrence: JP)
  Receive Date: 20190114
  Receipt Date: 20190114
  Transmission Date: 20190417
  Serious: Yes (Death)
  Sender: FDA-Public Use
  Company Number: JP-IMPAX LABORATORIES, LLC-2018-IPXL-04478

PATIENT
  Age: 75 Year
  Sex: Male

DRUGS (2)
  1. MEFLOQUINE [Suspect]
     Active Substance: MEFLOQUINE
     Indication: LYMPHOPENIA
     Dosage: UNK
     Route: 065
  2. MIRTAZAPINE ODT [Suspect]
     Active Substance: MIRTAZAPINE
     Indication: LYMPHOPENIA
     Dosage: UNK
     Route: 065

REACTIONS (1)
  - Adverse event [Fatal]
